FAERS Safety Report 7476981-9 (Version None)
Quarter: 2011Q2

REPORT INFORMATION
  Report Type: 
  Country: None (occurrence: None)
  Receive Date: 20110512
  Receipt Date: 20110408
  Transmission Date: 20111010
  Serious: No
  Sender: FDA-Public Use
  Company Number: US-BAYER-2011-031943

PATIENT
  Sex: Female

DRUGS (2)
  1. CLARINEX [Concomitant]
  2. AVELOX [Suspect]
     Indication: UPPER RESPIRATORY TRACT INFECTION
     Dosage: 400 MG, QD
     Route: 048
     Dates: start: 20110307, end: 20110311

REACTIONS (1)
  - HEART RATE INCREASED [None]
